FAERS Safety Report 8274950-2 (Version None)
Quarter: 2012Q2

REPORT INFORMATION
  Report Type: 
  Country: None (occurrence: None)
  Receive Date: 20120409
  Receipt Date: 20120402
  Transmission Date: 20120825
  Serious: Yes (Disabling)
  Sender: FDA-Public Use
  Company Number: GER/UKI/12/0023179

PATIENT
  Age: 47 Year
  Sex: Male
  Weight: 96.9 kg

DRUGS (17)
  1. ASPIRIN [Concomitant]
  2. BETAMETHASONE [Concomitant]
  3. NITROGLYCERIN [Concomitant]
  4. GLYCEROL 2.6% [Concomitant]
  5. ACETAMINOPHEN [Concomitant]
  6. VALPROATE SODIUM [Concomitant]
  7. BENDROFLUMETHIAZIDE (BENDROFLUMETHIAZIDE) [Concomitant]
  8. OMEPRAZOLE [Concomitant]
  9. CINCHOCAINE (CINCHOCAINE) [Concomitant]
  10. LAXIDO(LAXIDO) [Concomitant]
  11. SIMVASTATIN [Concomitant]
  12. PROCTOSEDYL(PROCTOSEDYL/00095901/) [Concomitant]
  13. AMLODIPINE [Suspect]
     Indication: PRODUCT USED FOR UNKNOWN INDICATION
     Dosage: 5 MG, 1 IN 1 D
     Dates: start: 20120117, end: 20120131
  14. RAMIPRIL [Concomitant]
  15. SENNA-MINT WAF [Concomitant]
  16. OTOMIZE(OTOMIZE) [Concomitant]
  17. BISOPROLOL FUMARATE [Concomitant]

REACTIONS (1)
  - CONVULSION [None]
